FAERS Safety Report 5911392-6 (Version None)
Quarter: 2008Q4

REPORT INFORMATION
  Report Type: 
  Country: None (occurrence: None)
  Receive Date: 20081002
  Receipt Date: 20080923
  Transmission Date: 20090506
  Serious: Yes (Other)
  Sender: FDA-Public Use
  Company Number: JPI-P-004837

PATIENT
  Sex: Male

DRUGS (1)
  1. XYREM [Suspect]
     Indication: DRUG USE FOR UNKNOWN INDICATION
     Dosage: ORAL
     Route: 048

REACTIONS (6)
  - ACCIDENTAL OVERDOSE [None]
  - DYSPNOEA [None]
  - FAECAL INCONTINENCE [None]
  - HALLUCINATION [None]
  - INCOHERENT [None]
  - URINARY INCONTINENCE [None]
